FAERS Safety Report 23409284 (Version 1)
Quarter: 2024Q1

REPORT INFORMATION
  Report Type: Spontaneous
  Country: US (occurrence: None)
  Receive Date: 20240115
  Receipt Date: 20240115
  Transmission Date: 20240410
  Serious: Yes (Other)
  Sender: FDA-Public Use
  Company Number: None

PATIENT
  Age: 51 Year
  Sex: Female
  Weight: 61.65 kg

DRUGS (12)
  1. WEGOVY [Suspect]
     Active Substance: SEMAGLUTIDE
     Indication: Weight decreased
     Dates: start: 20231001, end: 20231117
  2. WEGOVY [Suspect]
     Active Substance: SEMAGLUTIDE
     Indication: Product substitution issue
  3. WEGOVY [Suspect]
     Active Substance: SEMAGLUTIDE
     Indication: Product availability issue
  4. TOPAMAX [Concomitant]
     Active Substance: TOPIRAMATE
  5. metropolol succicnate [Concomitant]
  6. WELLBUTRIN [Concomitant]
     Active Substance: BUPROPION HYDROCHLORIDE
  7. OMEPRAZOLE [Concomitant]
     Active Substance: OMEPRAZOLE
  8. GABAPENTIN [Concomitant]
     Active Substance: GABAPENTIN
  9. LEVOTHYROXINE [Concomitant]
     Active Substance: LEVOTHYROXINE\LEVOTHYROXINE SODIUM
  10. POTASSIUM CHLORIDE [Concomitant]
     Active Substance: POTASSIUM CHLORIDE
  11. SPIRONOLACTONE [Concomitant]
     Active Substance: SPIRONOLACTONE
  12. SAXENDA [Concomitant]
     Active Substance: LIRAGLUTIDE

REACTIONS (4)
  - Product substitution issue [None]
  - Fibromyalgia [None]
  - Pain of skin [None]
  - Sensitive skin [None]

NARRATIVE: CASE EVENT DATE: 20231001
